FAERS Safety Report 6185685-4 (Version None)
Quarter: 2009Q2

REPORT INFORMATION
  Report Type: 
  Country: None (occurrence: None)
  Receive Date: 20090511
  Receipt Date: 20090508
  Transmission Date: 20091009
  Serious: Yes (Life-Threatening, Hospitalization, Other)
  Sender: FDA-Public Use
  Company Number: PHHY2009JP08752

PATIENT
  Age: 85 Year
  Sex: Female

DRUGS (8)
  1. TEGRETOL [Suspect]
     Indication: TRIGEMINAL NEURALGIA
     Dosage: 800 MG, UNK / FOUR TABLETS DAILY
     Route: 048
     Dates: end: 20080625
  2. VALTREX [Suspect]
     Indication: HERPES ZOSTER
     Dosage: 300 MG, UNK
     Route: 048
     Dates: end: 20080625
  3. DIOVAN [Concomitant]
     Dosage: 80 MG, UNK
     Route: 048
  4. ONEALFA [Concomitant]
     Dosage: 1 UG, UNK
     Route: 048
  5. BERIZYM [Concomitant]
     Dosage: 1 DF, UNK
     Route: 048
  6. GASTER D [Concomitant]
     Dosage: 10 MG, UNK
     Route: 048
  7. CEROCRAL [Concomitant]
     Dosage: 3 DF, UNK
     Route: 048
  8. BIOFERMIN [Concomitant]
     Dosage: 3 DF, UNK
     Route: 048

REACTIONS (9)
  - HERPES ZOSTER [None]
  - HYPOTENSION [None]
  - INFECTION [None]
  - NEUTROPENIA [None]
  - PAIN [None]
  - PYREXIA [None]
  - RASH [None]
  - SHOCK [None]
  - WHITE BLOOD CELL COUNT DECREASED [None]
